FAERS Safety Report 5339008-0 (Version None)
Quarter: 2007Q2

REPORT INFORMATION
  Report Type: 
  Country: None (occurrence: None)
  Receive Date: 20070530
  Receipt Date: 20070522
  Transmission Date: 20071010
  Serious: Yes (Other)
  Sender: FDA-Public Use
  Company Number: JP-PFIZER INC-2007015435

PATIENT
  Sex: Male
  Weight: 65 kg

DRUGS (16)
  1. DETRUSITOL [Suspect]
     Indication: HYPERTONIC BLADDER
     Route: 048
     Dates: start: 20070118, end: 20070130
  2. DETRUSITOL [Suspect]
     Indication: URGE INCONTINENCE
  3. URIEF [Concomitant]
     Route: 048
  4. CERNILTON [Concomitant]
     Route: 048
     Dates: start: 20050825
  5. BUFFERIN [Concomitant]
     Route: 048
     Dates: start: 20000317
  6. BLOPRESS [Concomitant]
     Route: 048
     Dates: start: 20020524
  7. MUCOSTA [Concomitant]
     Route: 048
     Dates: start: 20000317
  8. ARTIST [Concomitant]
     Route: 048
     Dates: start: 20020621
  9. CALSLOT [Concomitant]
     Route: 048
     Dates: start: 20060421
  10. PARAMIDIN [Concomitant]
     Route: 048
     Dates: start: 20011207
  11. WARFARIN SODIUM [Concomitant]
     Route: 048
  12. FAMOTIDINE [Concomitant]
     Route: 048
     Dates: start: 20030425
  13. TAMBOCOR [Concomitant]
     Route: 048
     Dates: start: 20010316
  14. VASOLAN [Concomitant]
     Route: 048
     Dates: start: 20011129
  15. BEPRICOR [Concomitant]
     Route: 048
     Dates: start: 20011207
  16. FLIVAS [Concomitant]
     Route: 048
     Dates: start: 20050926, end: 20061015

REACTIONS (1)
  - ARRHYTHMIA [None]
